FAERS Safety Report 8548772-9 (Version None)
Quarter: 2012Q3

REPORT INFORMATION
  Report Type: 
  Country: None (occurrence: None)
  Receive Date: 20120730
  Receipt Date: 20120724
  Transmission Date: 20120928
  Serious: Yes (Hospitalization, Other)
  Sender: FDA-Public Use
  Company Number: PHHY2012JP061015

PATIENT
  Age: 83 Year
  Sex: Female

DRUGS (11)
  1. AMLODIPINE [Concomitant]
     Dosage: 5 MG, UNK
     Route: 048
  2. LANSOPRAZOLE [Concomitant]
     Dosage: 15 MG, UNK
     Route: 048
  3. YOKUKAN-SAN [Concomitant]
     Dosage: 2 DF, UNK
     Route: 048
  4. RHEUMATREX [Concomitant]
     Route: 048
  5. ESTAZOLAM [Concomitant]
     Dosage: 3 MG, UNK
     Route: 048
  6. MOHRUS TAPE L [Concomitant]
  7. NICHISTATE [Concomitant]
     Dosage: 100 MG, UNK
     Route: 048
  8. FOLIC ACID [Concomitant]
     Dosage: 1 DF, UNK
     Route: 048
  9. LEVOTHYROXINE SODIUM [Concomitant]
     Dosage: 50 MG, UNK
     Route: 048
  10. EXELON [Suspect]
     Indication: DEMENTIA ALZHEIMER'S TYPE
     Dosage: 18 MG, DAILY
     Route: 062
  11. DOXAZOSIN MESYLATE [Concomitant]
     Dosage: 4 MG, UNK
     Route: 048

REACTIONS (3)
  - FALL [None]
  - HUMERUS FRACTURE [None]
  - PATELLA FRACTURE [None]
